FAERS Safety Report 20544582 (Version 1)
Quarter: 2022Q1

REPORT INFORMATION
  Report Type: Report from Study
  Country: US (occurrence: None)
  Receive Date: 20220303
  Receipt Date: 20220303
  Transmission Date: 20220423
  Serious: Yes (Hospitalization)
  Sender: FDA-Public Use
  Company Number: US-ROCHE-3032307

PATIENT
  Age: 56 Year
  Sex: Female
  Weight: 79 kg

DRUGS (2)
  1. OBINUTUZUMAB [Suspect]
     Active Substance: OBINUTUZUMAB
     Indication: Chronic lymphocytic leukaemia
     Dosage: LAST ADMINISTERED DATE: 13/SEP/2021?100 MG IV ON DAY 1, CYCLE 1?900 MG IV ON DAY 2, CYCLE 1?1000 MG
     Route: 042
     Dates: start: 20210426
  2. IBRUTINIB [Suspect]
     Active Substance: IBRUTINIB
     Indication: Chronic lymphocytic leukaemia
     Dosage: 420 MG PO QD ON DAYS 1-28?LAST ADMINISTERED DATE: 26/JAN/2021?TOTAL DOSE ADMINISTERED THIS COURSE (D
     Route: 048
     Dates: start: 20210426

REACTIONS (1)
  - COVID-19 [Not Recovered/Not Resolved]

NARRATIVE: CASE EVENT DATE: 20220123
